FAERS Safety Report 11856146 (Version 3)
Quarter: 2016Q1

REPORT INFORMATION
  Report Type: Spontaneous
  Country: US (occurrence: US)
  Receive Date: 20151221
  Receipt Date: 20160209
  Transmission Date: 20160526
  Serious: Yes (Other)
  Sender: FDA-Public Use
  Company Number: US-BAYER-2015-487678

PATIENT
  Age: 43 Year
  Sex: Female

DRUGS (1)
  1. CLIMARA PRO [Suspect]
     Active Substance: ESTRADIOL\LEVONORGESTREL
     Indication: OOPHORECTOMY
     Dosage: UNK
     Route: 061
     Dates: start: 20151030, end: 2015

REACTIONS (11)
  - Uterine haemorrhage [None]
  - Malaise [Recovered/Resolved]
  - Headache [Recovered/Resolved]
  - Product use issue [None]
  - Abdominal pain lower [None]
  - Insomnia [None]
  - Urinary tract infection [Recovered/Resolved]
  - Genital haemorrhage [Recovered/Resolved]
  - Chest pain [None]
  - Breast pain [Not Recovered/Not Resolved]
  - Pyrexia [Recovered/Resolved]

NARRATIVE: CASE EVENT DATE: 2015
